FAERS Safety Report 5244853-6 (Version None)
Quarter: 2007Q1

REPORT INFORMATION
  Report Type: 
  Country: None (occurrence: None)
  Receive Date: 20070223
  Receipt Date: 20070220
  Transmission Date: 20070707
  Serious: Yes (Hospitalization)
  Sender: FDA-Public Use
  Company Number: GB-SP-2007-00488

PATIENT
  Sex: Male

DRUGS (1)
  1. IMMUCYST [Suspect]
     Route: 043

REACTIONS (1)
  - EPIDIDYMITIS [None]
